FAERS Safety Report 4914148-6 (Version None)
Quarter: 2006Q1

REPORT INFORMATION
  Report Type: 
  Country: None (occurrence: None)
  Receive Date: 20060216
  Receipt Date: 20060118
  Transmission Date: 20060701
  Serious: Yes (Life-Threatening, Hospitalization)
  Sender: FDA-Public Use
  Company Number: GXKR2006DE00516

PATIENT
  Age: 42 Year
  Sex: Male
  Weight: 96 kg

DRUGS (2)
  1. DIPYRONE TAB [Concomitant]
     Indication: INTERVERTEBRAL DISC DEGENERATION
     Dosage: 60 DRP, QD
     Route: 048
     Dates: start: 20040101
  2. DICLOFENAC (NGX) [Suspect]
     Indication: BACK PAIN
     Dosage: 75 MG, BID
     Route: 048
     Dates: start: 20060114, end: 20060114

REACTIONS (4)
  - ANAPHYLACTIC REACTION [None]
  - ANGIONEUROTIC OEDEMA [None]
  - GASTROINTESTINAL DISORDER [None]
  - URTICARIA [None]
